FAERS Safety Report 10151917 (Version 1)
Quarter: 2014Q2

REPORT INFORMATION
  Report Type: Spontaneous
  Country: BR (occurrence: BR)
  Receive Date: 20140505
  Receipt Date: 20140505
  Transmission Date: 20141212
  Serious: Yes (Other)
  Sender: FDA-Public Use
  Company Number: BR-JNJFOC-20140418118

PATIENT
  Sex: Female
  Weight: 69 kg

DRUGS (9)
  1. REMINYL ER [Suspect]
     Indication: DEMENTIA ALZHEIMER^S TYPE
     Route: 065
     Dates: start: 2009
  2. EXELON [Concomitant]
     Indication: MEMORY IMPAIRMENT
     Route: 065
     Dates: start: 201309
  3. ACETYLSALICYLIC ACID [Concomitant]
     Indication: THROMBOSIS PROPHYLAXIS
     Route: 065
     Dates: start: 2010
  4. LIPITOR [Concomitant]
     Indication: CARDIOVASCULAR EVENT PROPHYLAXIS
     Route: 065
     Dates: start: 2010
  5. AMLODIPINE [Concomitant]
     Indication: BLOOD PRESSURE
     Route: 065
     Dates: start: 2007
  6. FLUOXETINE [Concomitant]
     Indication: DEPRESSION
     Route: 065
     Dates: start: 2008
  7. PURAN T4 [Concomitant]
     Indication: THYROID DISORDER
     Route: 065
     Dates: start: 2007
  8. ZARGUS [Concomitant]
     Indication: HALLUCINATION
     Route: 065
     Dates: start: 2007
  9. VITAMINS W/MINERALS/GINSENG [Concomitant]
     Dates: start: 2009

REACTIONS (3)
  - Hallucination [Unknown]
  - Catatonia [Unknown]
  - Repetitive speech [Unknown]
